FAERS Safety Report 18879194 (Version 3)
Quarter: 2021Q1

REPORT INFORMATION
  Report Type: Report from Study
  Country: PL (occurrence: PL)
  Receive Date: 20210211
  Receipt Date: 20210303
  Transmission Date: 20210420
  Serious: Yes (Hospitalization, Other)
  Sender: FDA-Public Use
  Company Number: PL-B.I. PHARMACEUTICALS,INC./RIDGEFIELD-2021-BI-080620

PATIENT
  Age: 67 Year
  Sex: Female
  Weight: 99.5 kg

DRUGS (5)
  1. PLACEBO [Suspect]
     Active Substance: UNSPECIFIED INGREDIENT
     Indication: CARDIAC FAILURE ACUTE
     Route: 048
     Dates: start: 20210114
  2. FUROSEMID [FUROSEMIDE] [Suspect]
     Active Substance: FUROSEMIDE
     Indication: CARDIAC FAILURE
     Dosage: CONT.
     Route: 048
     Dates: start: 20210121, end: 20210130
  3. SPIRONOL [Suspect]
     Active Substance: SPIRONOLACTONE
     Indication: CARDIAC FAILURE
     Route: 048
     Dates: start: 20210114, end: 20210130
  4. TORASEMID [Suspect]
     Active Substance: TORSEMIDE
     Indication: CARDIAC FAILURE
     Route: 048
  5. FUROSEMID [FUROSEMIDE] [Suspect]
     Active Substance: FUROSEMIDE
     Route: 048
     Dates: start: 20210131

REACTIONS (2)
  - Cardiac failure [Recovered/Resolved]
  - Chronic kidney disease [Recovered/Resolved]

NARRATIVE: CASE EVENT DATE: 20210128
